FAERS Safety Report 4782234-X (Version None)
Quarter: 2005Q3

REPORT INFORMATION
  Report Type: 
  Country: None (occurrence: None)
  Receive Date: 20050914
  Receipt Date: 20040809
  Transmission Date: 20060218
  Serious: Yes (Other)
  Sender: FDA-Public Use
  Company Number: 163-20785-04080203

PATIENT
  Age: 45 Year
  Sex: Male
  Weight: 96.6 kg

DRUGS (6)
  1. THALOMID [Suspect]
     Indication: MULTIPLE MYELOMA
     Dosage: 200 TO 400 MG, DAILY,ORAL; 50 MG, DAILY, ORAL
     Route: 048
     Dates: start: 20040322, end: 20040719
  2. THALOMID [Suspect]
     Indication: MULTIPLE MYELOMA
     Dosage: 200 TO 400 MG, DAILY,ORAL; 50 MG, DAILY, ORAL
     Route: 048
     Dates: start: 20040726, end: 20050308
  3. GENASENSE [Suspect]
     Indication: MULTIPLE MYELOMA
     Dosage: 5 MG/KG/DAY OR 3MG/KG/DAY ON DAYS 1-7  Q5 WKS, CIV, INTRAVENOUS DRIP
     Route: 041
     Dates: start: 20040319, end: 20050308
  4. DEXAMETHASONE [Suspect]
     Indication: MULTIPLE MYELOMA
     Dosage: 20 MG ON DAYS 4-7 EVERY 5 WEEKS, DAILY, ORAL
     Route: 048
     Dates: start: 20040322, end: 20050308
  5. BACTRIM DS [Concomitant]
  6. COUMADIN [Concomitant]

REACTIONS (3)
  - HYPOTHYROIDISM [None]
  - INFECTION [None]
  - PYREXIA [None]
